FAERS Safety Report 9733213 (Version 1)
Quarter: 2013Q4

REPORT INFORMATION
  Report Type: Spontaneous
  Country: US (occurrence: None)
  Receive Date: 20131204
  Receipt Date: 20131204
  Transmission Date: 20140711
  Serious: Yes (Hospitalization)
  Sender: FDA-Public Use
  Company Number: None

PATIENT
  Age: 50 Year
  Sex: Female
  Weight: 110 kg

DRUGS (29)
  1. CARBOPLATIN [Suspect]
  2. PEMETREXED [Suspect]
  3. BEVACIZUMAB [Suspect]
  4. PEMETREXED [Concomitant]
  5. BEVACIZUMAB [Concomitant]
  6. AVALIDE [Concomitant]
  7. LASIX [Concomitant]
  8. METROPROLOL SUCCINATE ER [Concomitant]
  9. MS CONTIN [Concomitant]
  10. OXYCODONE [Concomitant]
  11. MUCINEX D [Concomitant]
  12. ALBUTEROL NEBULIZERS INHALATION [Concomitant]
  13. B-12 [Concomitant]
  14. DEXAMETHASONE [Concomitant]
  15. CALCIUM/VIT D [Concomitant]
  16. MULTIVITAMIN [Concomitant]
  17. ZOFRAN [Concomitant]
  18. NEXIUM [Concomitant]
  19. FLEXERAL [Concomitant]
  20. ASPIRIN [Concomitant]
  21. KLONOPIN [Concomitant]
  22. PHENERGAN [Concomitant]
  23. K-DUR [Concomitant]
  24. CYMBALTA [Concomitant]
  25. BIOTIN [Concomitant]
  26. LORAZEPAM [Concomitant]
  27. MECLIZINE [Concomitant]
  28. NORFLEX [Concomitant]
  29. ZOCOR [Concomitant]

REACTIONS (3)
  - Cough [None]
  - Asthenia [None]
  - Hypophagia [None]
